FAERS Safety Report 14147728 (Version 9)
Quarter: 2019Q2

REPORT INFORMATION
  Report Type: Report from Study
  Country: None (occurrence: US)
  Receive Date: 20171101
  Receipt Date: 20190524
  Transmission Date: 20190711
  Serious: Yes (Other)
  Sender: FDA-Public Use
  Company Number: US-ABBVIE-17K-163-2145213-00

PATIENT
  Sex: Female

DRUGS (3)
  1. HUMIRA [Suspect]
     Active Substance: ADALIMUMAB
     Indication: RHEUMATOID ARTHRITIS
     Route: 058
     Dates: start: 201603
  2. METHOTREXATE. [Suspect]
     Active Substance: METHOTREXATE
     Indication: PRODUCT USED FOR UNKNOWN INDICATION
     Route: 065
  3. METHOTREXATE. [Suspect]
     Active Substance: METHOTREXATE
     Route: 065

REACTIONS (31)
  - Sensitivity to weather change [Unknown]
  - Photophobia [Unknown]
  - Hypoaesthesia [Not Recovered/Not Resolved]
  - Dry throat [Unknown]
  - Therapeutic response shortened [Unknown]
  - Pain in extremity [Not Recovered/Not Resolved]
  - Facial pain [Unknown]
  - Liver function test increased [Unknown]
  - Eye discharge [Not Recovered/Not Resolved]
  - Swelling face [Unknown]
  - Joint stiffness [Unknown]
  - Vision blurred [Unknown]
  - Nausea [Unknown]
  - Gastrooesophageal reflux disease [Not Recovered/Not Resolved]
  - Rheumatoid arthritis [Unknown]
  - Pain [Unknown]
  - Paraesthesia [Unknown]
  - Fatigue [Unknown]
  - Cough [Not Recovered/Not Resolved]
  - Inflammation [Unknown]
  - Eye pain [Unknown]
  - Fibromyalgia [Unknown]
  - Musculoskeletal stiffness [Unknown]
  - Systemic lupus erythematosus [Not Recovered/Not Resolved]
  - Joint swelling [Unknown]
  - Eye disorder [Unknown]
  - Nasal dryness [Unknown]
  - Nodule [Unknown]
  - Muscular weakness [Unknown]
  - Arthralgia [Unknown]
  - Musculoskeletal pain [Unknown]

NARRATIVE: CASE EVENT DATE: 2017
